FAERS Safety Report 9819962 (Version 2)
Quarter: 2014Q2

REPORT INFORMATION
  Report Type: Spontaneous
  Country: US (occurrence: None)
  Receive Date: 20131223
  Receipt Date: 20140530
  Transmission Date: 20141212
  Serious: No
  Sender: FDA-Public Use
  Company Number: 222671

PATIENT
  Age: 74 Year
  Sex: Male

DRUGS (1)
  1. PICATO GEL [Suspect]
     Indication: ACTINIC KERATOSIS
     Route: 061
     Dates: start: 20130712, end: 20130713

REACTIONS (5)
  - Application site swelling [None]
  - Application site vesicles [None]
  - Application site discharge [None]
  - Drug administered at inappropriate site [None]
  - Incorrect dose administered [None]
